FAERS Safety Report 24253083 (Version 1)
Quarter: 2024Q3

REPORT INFORMATION
  Report Type: Spontaneous
  Country: US (occurrence: US)
  Receive Date: 20240827
  Receipt Date: 20240827
  Transmission Date: 20241016
  Serious: No
  Sender: MACLEODS
  Company Number: US-MACLEODS PHARMA-MAC2024048942

PATIENT

DRUGS (1)
  1. RIZATRIPTAN [Suspect]
     Active Substance: RIZATRIPTAN
     Indication: Product used for unknown indication
     Dosage: WITHIN 2 HOURS
     Route: 065

REACTIONS (1)
  - Headache [Unknown]
